FAERS Safety Report 7578127-5 (Version None)
Quarter: 2011Q2

REPORT INFORMATION
  Report Type: 
  Country: None (occurrence: None)
  Receive Date: 20110628
  Receipt Date: 20110607
  Transmission Date: 20111010
  Serious: Yes (Hospitalization)
  Sender: FDA-Public Use
  Company Number: A0813502A

PATIENT
  Age: 53 Year
  Sex: Male
  Weight: 100 kg

DRUGS (8)
  1. ENALAPRIL MALEATE [Concomitant]
  2. METFORMIN HCL [Concomitant]
  3. GLIPIZIDE [Concomitant]
  4. CLONIDINE [Concomitant]
  5. AVANDIA [Suspect]
     Indication: DIABETES MELLITUS
     Dosage: 4MG PER DAY
     Route: 048
     Dates: end: 20080912
  6. ADVAIR DISKUS 100/50 [Concomitant]
  7. AVANDAMET [Suspect]
     Indication: DIABETES MELLITUS
     Route: 048
  8. LIPITOR [Concomitant]

REACTIONS (7)
  - CARDIAC DISORDER [None]
  - RENAL INJURY [None]
  - RENAL FAILURE [None]
  - TRANSIENT ISCHAEMIC ATTACK [None]
  - CARDIAC FAILURE CONGESTIVE [None]
  - LACUNAR INFARCTION [None]
  - CEREBROVASCULAR ACCIDENT [None]
